FAERS Safety Report 18299689 (Version 1)
Quarter: 2020Q3

REPORT INFORMATION
  Report Type: Spontaneous
  Country: AT (occurrence: AT)
  Receive Date: 20200923
  Receipt Date: 20200923
  Transmission Date: 20201103
  Serious: Yes (Other)
  Sender: FDA-Public Use
  Company Number: AT-UCBSA-2020037148

PATIENT
  Sex: Female
  Weight: 85 kg

DRUGS (2)
  1. NAPROBENE [Concomitant]
     Active Substance: NAPROXEN
     Indication: SPONDYLITIS
     Dosage: BIS MAX 2X500 MG
     Dates: start: 201804
  2. CIMZIA [Suspect]
     Active Substance: CERTOLIZUMAB PEGOL
     Indication: SPONDYLITIS
     Dosage: 200 MILLIGRAM, EV 3 WEEKS
     Dates: start: 201903

REACTIONS (2)
  - Maternal exposure during pregnancy [Unknown]
  - Abortion [Recovered/Resolved]

NARRATIVE: CASE EVENT DATE: 20200421
